FAERS Safety Report 5096397-2 (Version None)
Quarter: 2006Q3

REPORT INFORMATION
  Report Type: 
  Country: None (occurrence: None)
  Receive Date: 20060831
  Receipt Date: 20060816
  Transmission Date: 20061208
  Serious: Yes (Other)
  Sender: FDA-Public Use
  Company Number: US-2006-023815

PATIENT
  Sex: Female

DRUGS (1)
  1. ULTRAVIST 370 [Suspect]

REACTIONS (3)
  - CEREBROVASCULAR ACCIDENT [None]
  - CONTRAST MEDIA REACTION [None]
  - STATUS EPILEPTICUS [None]
